FAERS Safety Report 14139645 (Version 1)
Quarter: 2017Q4

REPORT INFORMATION
  Report Type: Spontaneous
  Country: CN (occurrence: CN)
  Receive Date: 20171029
  Receipt Date: 20171029
  Transmission Date: 20180321
  Serious: Yes (Other)
  Sender: FDA-Public Use
  Company Number: PHHY2017CN157903

PATIENT
  Sex: Female

DRUGS (1)
  1. METFORMIN [Suspect]
     Active Substance: METFORMIN HYDROCHLORIDE
     Indication: BREAST CANCER METASTATIC
     Dosage: 0.5 G, BID
     Route: 048

REACTIONS (3)
  - Drug intolerance [Unknown]
  - Toxicity to various agents [Unknown]
  - Product use in unapproved indication [Unknown]
